FAERS Safety Report 11625157 (Version 2)
Quarter: 2015Q4

REPORT INFORMATION
  Report Type: Spontaneous
  Country: JP (occurrence: JP)
  Receive Date: 20151013
  Receipt Date: 20151103
  Transmission Date: 20160304
  Serious: Yes (Hospitalization, Disabling, Other)
  Sender: FDA-Public Use
  Company Number: JP-CLINIGEN HEALTHCARE-CLINIGEN-003449

PATIENT
  Age: 6 Year
  Sex: Female
  Weight: 19.2 kg

DRUGS (31)
  1. LASIX [Concomitant]
     Active Substance: FUROSEMIDE
     Indication: INAPPROPRIATE ANTIDIURETIC HORMONE SECRETION
     Dates: start: 20131016
  2. MAGNESIUM SULPHATE                 /01097001/ [Concomitant]
     Active Substance: MAGNESIUM SULFATE
     Indication: HYPOMAGNESAEMIA
     Dates: start: 20131004
  3. VORICONAZOLE. [Concomitant]
     Active Substance: VORICONAZOLE
     Indication: BRONCHOPULMONARY ASPERGILLOSIS
     Dates: start: 20131008, end: 20140120
  4. CLARITH [Concomitant]
     Active Substance: CLARITHROMYCIN
     Indication: BRONCHITIS CHRONIC
     Dates: start: 20130926, end: 20140119
  5. FUROSEMIDE. [Concomitant]
     Active Substance: FUROSEMIDE
     Indication: INAPPROPRIATE ANTIDIURETIC HORMONE SECRETION
  6. GANCICLOVIR. [Concomitant]
     Active Substance: GANCICLOVIR
  7. BIOFERMIN                          /01617201/ [Concomitant]
     Active Substance: BACILLUS SUBTILIS\LACTOBACILLUS ACIDOPHILUS\STREPTOCOCCUS FAECAIS
     Indication: CYTOMEGALOVIRUS ENTERITIS
     Dates: start: 20130926, end: 20140119
  8. FUROSEMIDE. [Concomitant]
     Active Substance: FUROSEMIDE
     Indication: FLUID REPLACEMENT
     Dates: start: 20131017, end: 20140107
  9. GANCICLOVIR. [Concomitant]
     Active Substance: GANCICLOVIR
     Dates: start: 20131228, end: 20140106
  10. GANCICLOVIR. [Concomitant]
     Active Substance: GANCICLOVIR
     Dates: start: 20131016
  11. IMMUNOGLOBULIN (NISSEKI POLYGLOBIN) [Concomitant]
     Route: 042
  12. POTASSIUM CHLORIDE. [Concomitant]
     Active Substance: POTASSIUM CHLORIDE
     Indication: HYPOKALAEMIA
     Dates: start: 20131002
  13. MUCODYNE [Concomitant]
     Active Substance: CARBOCYSTEINE
     Indication: BRONCHITIS
     Dates: start: 20130926, end: 20140119
  14. GANCICLOVIR. [Concomitant]
     Active Substance: GANCICLOVIR
     Route: 048
  15. PREDNISOLONE. [Concomitant]
     Active Substance: PREDNISOLONE
  16. GCSF ( GRANULOCYTE-COLONY STIMULATING FACTOR) [Concomitant]
     Indication: CYTOMEGALOVIRUS VIRAEMIA
     Route: 041
     Dates: start: 20140109
  17. SODIUM CHLORIDE. [Concomitant]
     Active Substance: SODIUM CHLORIDE
     Indication: HYPONATRAEMIA
     Dates: start: 20131018
  18. FOSCAVIR [Suspect]
     Active Substance: FOSCARNET SODIUM
     Route: 041
     Dates: start: 20131220, end: 20131223
  19. PREDNISOLONE. [Concomitant]
     Active Substance: PREDNISOLONE
  20. GCSF ( GRANULOCYTE-COLONY STIMULATING FACTOR) [Concomitant]
     Indication: CYTOPENIA
     Dates: start: 20140118
  21. FAMOTIDINE. [Concomitant]
     Active Substance: FAMOTIDINE
     Indication: PROPHYLAXIS AGAINST GASTROINTESTINAL ULCER
     Dates: start: 20130926, end: 20140119
  22. IMMUNOGLOBULIN (NISSEKI POLYGLOBIN) [Concomitant]
     Indication: HYPOGAMMAGLOBULINAEMIA
     Route: 042
  23. FOSCAVIR [Suspect]
     Active Substance: FOSCARNET SODIUM
     Indication: ENCEPHALITIS CYTOMEGALOVIRUS
     Route: 041
     Dates: start: 20131016, end: 20131220
  24. FOSCAVIR [Suspect]
     Active Substance: FOSCARNET SODIUM
     Route: 041
     Dates: start: 20140103, end: 20140107
  25. GANCICLOVIR. [Concomitant]
     Active Substance: GANCICLOVIR
     Indication: ENCEPHALITIS CYTOMEGALOVIRUS
     Dates: start: 20131016
  26. PREDNISOLONE. [Concomitant]
     Active Substance: PREDNISOLONE
     Indication: ENCEPHALITIS CYTOMEGALOVIRUS
     Dosage: 8-2 MG TWICE DAILY
     Dates: start: 20130610
  27. BAKTAR [Concomitant]
     Active Substance: SULFAMETHOXAZOLE\TRIMETHOPRIM
     Indication: PROPHYLAXIS
     Dates: start: 20130926, end: 20140119
  28. MUCOSOLVAN [Concomitant]
     Active Substance: AMBROXOL HYDROCHLORIDE
     Indication: BRONCHITIS
     Dates: start: 20130926, end: 20140119
  29. FOSCAVIR [Suspect]
     Active Substance: FOSCARNET SODIUM
     Route: 041
     Dates: start: 20131002, end: 20131016
  30. HEPARIN SODIUM. [Concomitant]
     Active Substance: HEPARIN SODIUM
     Indication: THROMBOSIS PROPHYLAXIS
     Dates: start: 20131002, end: 20140120
  31. GCSF ( GRANULOCYTE-COLONY STIMULATING FACTOR) [Concomitant]
     Dates: end: 20140120

REACTIONS (7)
  - Adenovirus infection [Not Recovered/Not Resolved]
  - Renal impairment [Recovering/Resolving]
  - Fanconi syndrome [Recovering/Resolving]
  - Diabetes insipidus [Recovering/Resolving]
  - Pancytopenia [Recovering/Resolving]
  - Renal tubular acidosis [Recovering/Resolving]
  - Product use issue [Unknown]

NARRATIVE: CASE EVENT DATE: 201312
